FAERS Safety Report 19678963 (Version 1)
Quarter: 2021Q3

REPORT INFORMATION
  Report Type: Spontaneous
  Country: US (occurrence: US)
  Receive Date: 20210809
  Receipt Date: 20210809
  Transmission Date: 20211014
  Serious: No
  Sender: FDA-Public Use
  Company Number: None

PATIENT
  Age: 75 Year
  Sex: Male

DRUGS (1)
  1. SUCRALFATE (SUCRALFATE 1GM TAB) [Suspect]
     Active Substance: SUCRALFATE
     Dosage: ?          OTHER FREQUENCY:QID;?
     Route: 048
     Dates: start: 20210301, end: 20210406

REACTIONS (1)
  - Tremor [None]

NARRATIVE: CASE EVENT DATE: 20210406
